FAERS Safety Report 17243655 (Version 1)
Quarter: 2020Q1

REPORT INFORMATION
  Report Type: Spontaneous
  Country: US (occurrence: US)
  Receive Date: 20200107
  Receipt Date: 20200107
  Transmission Date: 20200409
  Serious: No
  Sender: FDA-Public Use
  Company Number: US-TOLMAR, INC.-19US000644

PATIENT
  Age: 63 Year
  Sex: Male

DRUGS (1)
  1. ELIGARD [Suspect]
     Active Substance: LEUPROLIDE ACETATE
     Indication: BREAST CANCER
     Dosage: 7.5 MG, Q2MONTHS
     Route: 058
     Dates: start: 201901

REACTIONS (4)
  - Intercepted product preparation error [None]
  - Off label use [Unknown]
  - Wrong technique in product usage process [None]
  - Needle issue [None]

NARRATIVE: CASE EVENT DATE: 201901
